FAERS Safety Report 5152599-8 (Version None)
Quarter: 2006Q4

REPORT INFORMATION
  Report Type: 
  Country: None (occurrence: None)
  Receive Date: 20061109
  Receipt Date: 20061025
  Transmission Date: 20070319
  Serious: Yes (Hospitalization)
  Sender: FDA-Public Use
  Company Number: 2006SS000073

PATIENT
  Age: 78 Year
  Sex: Male

DRUGS (5)
  1. MYOBLOC [Suspect]
     Indication: OFF LABEL USE
     Dosage: 2500 UNITS; INTRAGLANDULAR
     Dates: start: 20060331, end: 20060331
  2. MYOBLOC [Suspect]
     Indication: SALIVARY HYPERSECRETION
     Dosage: 2500 UNITS; INTRAGLANDULAR
     Dates: start: 20060331, end: 20060331
  3. MYOBLOC [Suspect]
     Indication: OFF LABEL USE
     Dosage: 2500 UNITS; INTRAGLANDULAR
     Dates: start: 20060612, end: 20060612
  4. MYOBLOC [Suspect]
     Indication: SALIVARY HYPERSECRETION
     Dosage: 2500 UNITS; INTRAGLANDULAR
     Dates: start: 20060612, end: 20060612
  5. STALEVO 100 [Concomitant]

REACTIONS (13)
  - COGNITIVE DISORDER [None]
  - CONDITION AGGRAVATED [None]
  - GINGIVAL DISCOLOURATION [None]
  - HEADACHE [None]
  - LYMPHADENOPATHY [None]
  - MASS [None]
  - OFF LABEL USE [None]
  - ORAL MUCOSAL DISCOLOURATION [None]
  - PAIN IN EXTREMITY [None]
  - PARKINSON'S DISEASE [None]
  - PAROTITIS [None]
  - SALIVARY GLAND DISORDER [None]
  - VENOUS THROMBOSIS [None]
